FAERS Safety Report 8915727 (Version 1)
Quarter: 2012Q4

REPORT INFORMATION
  Report Type: 
  Country: BR (occurrence: BR)
  Receive Date: 20121119
  Receipt Date: 20121119
  Transmission Date: 20130627
  Serious: Yes (Hospitalization)
  Sender: FDA-Public Use
  Company Number: BR-TEVA-370399ISR

PATIENT
  Age: 49 Year
  Sex: Female
  Weight: 95 kg

DRUGS (17)
  1. COPAXONE [Suspect]
     Indication: MULTIPLE SCLEROSIS
     Dosage: 20 Milligram Daily;
     Route: 058
     Dates: start: 20040602
  2. METICORTEN [Suspect]
     Route: 065
  3. ZOCOR [Suspect]
     Route: 065
  4. PAMELOR [Suspect]
     Indication: DEPRESSION
     Route: 065
  5. TENORETIC [Suspect]
     Indication: HYPERTENSION
     Route: 065
  6. GABAPENTINE [Suspect]
     Indication: DEPRESSION
     Route: 065
  7. LOSARTAN [Concomitant]
     Indication: HYPERTENSION
     Route: 065
  8. CYCLOSPORINE [Concomitant]
     Indication: HEART TRANSPLANT
     Route: 065
  9. NATRIILIX [Concomitant]
     Indication: HYPERTENSION
     Route: 065
  10. OLCADIL [Concomitant]
     Indication: DEPRESSION
     Route: 065
  11. TEGRETOL [Concomitant]
     Route: 065
  12. PRISTIQ [Concomitant]
     Indication: DEPRESSION
     Route: 065
  13. METFORMINE [Concomitant]
     Indication: DIABETES MELLITUS
     Route: 065
  14. LASIX [Concomitant]
     Indication: HYPERTENSION
     Route: 065
  15. ALDACTONE [Concomitant]
     Indication: HYPERTENSION
     Route: 065
  16. ZOLPIDEM [Concomitant]
     Route: 065
  17. OMEPRAZOLE [Concomitant]
     Route: 065

REACTIONS (3)
  - Overdose [Recovered/Resolved]
  - Syncope [Recovered/Resolved]
  - Coma [Recovered/Resolved]
